FAERS Safety Report 10681631 (Version 2)
Quarter: 2014Q4

REPORT INFORMATION
  Report Type: Spontaneous
  Country: JP (occurrence: JP)
  Receive Date: 20141230
  Receipt Date: 20141230
  Transmission Date: 20150529
  Serious: Yes (Hospitalization)
  Sender: FDA-Public Use
  Company Number: JP-DSJP-DSJ-2014-129831

PATIENT

DRUGS (6)
  1. OLMETEC [Suspect]
     Active Substance: OLMESARTAN MEDOXOMIL
     Indication: PRODUCT USED FOR UNKNOWN INDICATION
     Dosage: 20 MG, QD
     Route: 048
     Dates: start: 20141101, end: 20141104
  2. BENIDIPINE [Concomitant]
     Active Substance: BENIDIPINE
     Dosage: 4MG
     Route: 048
     Dates: start: 20141101
  3. TENELIA TABLETS 20MG [Concomitant]
     Dosage: 20 MG, QD
     Route: 048
     Dates: start: 20141102
  4. OLMETEC [Suspect]
     Active Substance: OLMESARTAN MEDOXOMIL
     Dosage: 40 MG, QD
     Route: 048
     Dates: start: 20141105
  5. ATENOLOL. [Suspect]
     Active Substance: ATENOLOL
     Dosage: 25MG
     Route: 048
     Dates: start: 20141111, end: 20141125
  6. CRESTOR [Concomitant]
     Active Substance: ROSUVASTATIN CALCIUM
     Dosage: 2.5 MG, QD
     Route: 048
     Dates: start: 20141101

REACTIONS (2)
  - Blood potassium increased [Recovered/Resolved]
  - Cerebral haemorrhage [Unknown]

NARRATIVE: CASE EVENT DATE: 20141121
